FAERS Safety Report 20303695 (Version 1)
Quarter: 2022Q1

REPORT INFORMATION
  Report Type: Report from Study
  Country: PE (occurrence: PE)
  Receive Date: 20220106
  Receipt Date: 20220106
  Transmission Date: 20220423
  Serious: Yes (Hospitalization, Other)
  Sender: FDA-Public Use
  Company Number: PE-BAYER-2021A239323

PATIENT
  Age: 44 Year
  Sex: Female

DRUGS (3)
  1. BETAFERON [Suspect]
     Active Substance: INTERFERON BETA-1B
     Indication: Multiple sclerosis
     Dosage: UNK
     Dates: start: 2020
  2. BETAFERON [Suspect]
     Active Substance: INTERFERON BETA-1B
     Indication: Multiple sclerosis
     Dosage: UNK
     Dates: start: 20211021
  3. GABAPENTIN [Concomitant]
     Active Substance: GABAPENTIN
     Indication: Somnolence

REACTIONS (5)
  - Muscular weakness [Unknown]
  - Hypoaesthesia [Unknown]
  - Hemianaesthesia [Unknown]
  - Muscular weakness [Unknown]
  - Hypoaesthesia [Unknown]

NARRATIVE: CASE EVENT DATE: 20211206
